FAERS Safety Report 5603173-8 (Version None)
Quarter: 2008Q1

REPORT INFORMATION
  Report Type: 
  Country: None (occurrence: None)
  Receive Date: 20080125
  Receipt Date: 20080115
  Transmission Date: 20080703
  Serious: Yes (Other)
  Sender: FDA-Public Use
  Company Number: US-PFIZER INC-2008006927

PATIENT
  Sex: Female
  Weight: 63.636 kg

DRUGS (2)
  1. CHANTIX [Suspect]
     Indication: SMOKING CESSATION THERAPY
     Dates: start: 20080102, end: 20080101
  2. ANTIBIOTICS [Suspect]

REACTIONS (3)
  - ADVERSE EVENT [None]
  - HYPERTENSION [None]
  - TACHYCARDIA [None]
